FAERS Safety Report 6056050-5 (Version None)
Quarter: 2009Q1

REPORT INFORMATION
  Report Type: 
  Country: None (occurrence: None)
  Receive Date: 20090126
  Receipt Date: 20090112
  Transmission Date: 20090719
  Serious: Yes (Hospitalization)
  Sender: FDA-Public Use
  Company Number: 1000003609

PATIENT
  Age: 35 Year
  Sex: Male

DRUGS (1)
  1. ESCITALOPRAM [Suspect]
     Indication: DEPRESSION
     Dosage: 20 MG (20 MG, 1 IN 1 D) ,ORAL
     Route: 048
     Dates: start: 20081208, end: 20081213

REACTIONS (8)
  - BIOPSY LIVER ABNORMAL [None]
  - BLOOD LACTATE DEHYDROGENASE INCREASED [None]
  - CHOLESTASIS [None]
  - DRUG TOXICITY [None]
  - GAMMA-GLUTAMYLTRANSFERASE INCREASED [None]
  - HEPATIC ENZYME ABNORMAL [None]
  - MALAISE [None]
  - TRANSAMINASES INCREASED [None]
